FAERS Safety Report 7948105-2 (Version None)
Quarter: 2011Q4

REPORT INFORMATION
  Report Type: 
  Country: None (occurrence: None)
  Receive Date: 20111125
  Receipt Date: 20111117
  Transmission Date: 20120403
  Serious: Yes (Congenital Anomaly, Other)
  Sender: FDA-Public Use
  Company Number: GER/GER/11/0022013

PATIENT
  Sex: Male
  Weight: 4.12 kg

DRUGS (4)
  1. LORAZEPAM [Concomitant]
  2. DIMENHYDRINATE [Concomitant]
  3. SERTRALINE HYDROCHLORIDE [Suspect]
     Indication: PRODUCT USED FOR UNKNOWN INDICATION
     Dosage: 74 MG, 1 IN 1, TRANSPLACENTAL; 100 MG, 1 IN 1, TRANSPLACENTAL
     Route: 064
     Dates: start: 20110119, end: 20110802
  4. SERTRALINE HYDROCHLORIDE [Suspect]
     Indication: PRODUCT USED FOR UNKNOWN INDICATION
     Dosage: 74 MG, 1 IN 1, TRANSPLACENTAL; 100 MG, 1 IN 1, TRANSPLACENTAL
     Route: 064
     Dates: start: 20101220, end: 20110118

REACTIONS (9)
  - NEONATAL RESPIRATORY DISTRESS SYNDROME [None]
  - LARGE FOR DATES BABY [None]
  - ATRIAL SEPTAL DEFECT [None]
  - PETECHIAE [None]
  - DRUG WITHDRAWAL SYNDROME NEONATAL [None]
  - RESPIRATORY FAILURE [None]
  - HAEMANGIOMA CONGENITAL [None]
  - MATERNAL DRUGS AFFECTING FOETUS [None]
  - TRANSAMINASES INCREASED [None]
